APPROVED DRUG PRODUCT: MELOXICAM
Active Ingredient: MELOXICAM
Strength: 7.5MG
Dosage Form/Route: TABLET;ORAL
Application: A077944 | Product #001
Applicant: LUPIN PHARMACEUTICALS INC
Approved: Jul 19, 2006 | RLD: No | RS: No | Type: DISCN